FAERS Safety Report 6532688-3 (Version None)
Quarter: 2010Q1

REPORT INFORMATION
  Report Type: 
  Country: None (occurrence: None)
  Receive Date: 20100111
  Receipt Date: 20100106
  Transmission Date: 20100710
  Serious: Yes (Other)
  Sender: FDA-Public Use
  Company Number: US-BAYER-200943291NA

PATIENT
  Sex: Female

DRUGS (1)
  1. MIRENA [Suspect]
     Indication: DRUG USE FOR UNKNOWN INDICATION
     Dosage: CONTINUOUS
     Route: 015

REACTIONS (6)
  - DEPRESSION [None]
  - FATIGUE [None]
  - INCREASED APPETITE [None]
  - MEDICAL DEVICE COMPLICATION [None]
  - MOOD ALTERED [None]
  - WEIGHT INCREASED [None]
